FAERS Safety Report 7471793-4 (Version None)
Quarter: 2011Q2

REPORT INFORMATION
  Report Type: 
  Country: None (occurrence: None)
  Receive Date: 20110511
  Receipt Date: 20100510
  Transmission Date: 20111010
  Serious: No
  Sender: FDA-Public Use
  Company Number: A0859276A

PATIENT
  Age: 50 Year
  Sex: Female

DRUGS (2)
  1. TYKERB [Suspect]
     Dosage: 1250MG PER DAY
     Route: 065
     Dates: start: 20100430
  2. XELODA [Concomitant]
     Dosage: 5TAB UNKNOWN
     Route: 065
     Dates: start: 20100430

REACTIONS (1)
  - PALPITATIONS [None]
